FAERS Safety Report 14372762 (Version 1)
Quarter: 2018Q1

REPORT INFORMATION
  Report Type: Spontaneous
  Country: FR (occurrence: FR)
  Receive Date: 20180110
  Receipt Date: 20180110
  Transmission Date: 20180509
  Serious: Yes (Other)
  Sender: FDA-Public Use
  Company Number: FR-BAYER-2018-000635

PATIENT
  Sex: Female

DRUGS (1)
  1. CIFLOX 400/200 MG/ML [Suspect]
     Active Substance: CIPROFLOXACIN LACTATE
     Dosage: UNK

REACTIONS (1)
  - Injection site extravasation [None]
